FAERS Safety Report 6314424-9 (Version None)
Quarter: 2009Q3

REPORT INFORMATION
  Report Type: 
  Country: None (occurrence: None)
  Receive Date: 20090819
  Receipt Date: 20090810
  Transmission Date: 20100115
  Serious: Yes (Other)
  Sender: FDA-Public Use
  Company Number: GB-ROCHE-649893

PATIENT
  Age: 50 Year
  Sex: Male

DRUGS (8)
  1. KYTRIL [Suspect]
     Route: 065
     Dates: start: 20090803, end: 20090803
  2. MABTHERA [Suspect]
     Indication: LYMPHOMA
     Route: 065
     Dates: start: 20090803
  3. VINCRISTINE [Concomitant]
     Indication: LYMPHOMA
     Dosage: REPORTED AS PART OF R-CHOP THERAPY
     Dates: start: 20090803
  4. CYCLOPHOSPHAMIDE [Concomitant]
     Indication: LYMPHOMA
     Dosage: REPORTED AS PART OF R-CHOP THERAPY
     Dates: start: 20090803
  5. PREDNISOLONE [Concomitant]
     Indication: LYMPHOMA
     Dosage: REPORTED AS PART OF R-CHOP THERAPY
     Dates: start: 20090803
  6. PIRITON [Concomitant]
     Dates: start: 20090803, end: 20090803
  7. DOXORUBICIN HCL [Concomitant]
     Indication: LYMPHOMA
     Dosage: REPORTED AS PART OF R-CHOP THERAPY
     Dates: start: 20090803
  8. HYDROCORTISONE [Concomitant]
     Dates: start: 20090803, end: 20090803

REACTIONS (3)
  - BLOOD PRESSURE DECREASED [None]
  - BRADYCARDIA [None]
  - CIRCULATORY COLLAPSE [None]
